FAERS Safety Report 7595387-5 (Version None)
Quarter: 2011Q3

REPORT INFORMATION
  Report Type: 
  Country: None (occurrence: None)
  Receive Date: 20110707
  Receipt Date: 20110630
  Transmission Date: 20111222
  Serious: Yes (Hospitalization, Other)
  Sender: FDA-Public Use
  Company Number: US-JNJFOC-20110700922

PATIENT
  Age: 54 Year
  Sex: Male
  Weight: 129.28 kg

DRUGS (7)
  1. TOPAMAX [Suspect]
     Indication: MIGRAINE
     Route: 048
  2. IBUPROFEN [Suspect]
     Indication: PAIN
     Route: 065
  3. XANAX [Concomitant]
     Route: 065
  4. TOPAMAX [Suspect]
     Indication: HEADACHE
     Route: 048
  5. TENORMIN [Concomitant]
     Route: 065
  6. SERTRALINE HYDROCHLORIDE [Suspect]
     Indication: DEPRESSION
     Route: 048
     Dates: start: 20060101
  7. PERCOCET [Concomitant]
     Route: 065

REACTIONS (12)
  - HEADACHE [None]
  - EMOTIONAL DISORDER [None]
  - SEPSIS [None]
  - SPINAL CORD DISORDER [None]
  - NEPHROLITHIASIS [None]
  - NECK PAIN [None]
  - KIDNEY INFECTION [None]
  - HYPOAESTHESIA [None]
  - GASTRIC PERFORATION [None]
  - NIGHTMARE [None]
  - MOOD ALTERED [None]
  - CALCULUS URETHRAL [None]
